FAERS Safety Report 5478720-X (Version None)
Quarter: 2007Q4

REPORT INFORMATION
  Report Type: 
  Country: None (occurrence: None)
  Receive Date: 20071005
  Receipt Date: 20071005
  Transmission Date: 20080405
  Serious: Yes (Congenital Anomaly)
  Sender: FDA-Public Use
  Company Number: US-BOEHRINGER INGELHEIM PHARMACEUTICALS, INC.-2007-BP-19791BP

PATIENT
  Age: 0 Day
  Sex: Female
  Weight: 1 kg

DRUGS (7)
  1. VIRAMUNE [Suspect]
     Route: 015
  2. 3TC [Suspect]
     Route: 015
  3. ABACAVIR SULFATE [Suspect]
     Route: 015
  4. DDI [Suspect]
     Route: 015
  5. NELFINAVIR [Suspect]
     Route: 015
  6. SAQUINAVIR [Suspect]
     Route: 015
  7. AZT [Suspect]
     Route: 015

REACTIONS (3)
  - DRUG EXPOSURE DURING PREGNANCY [None]
  - JOINT DISLOCATION [None]
  - PREMATURE BABY [None]
